FAERS Safety Report 21437570 (Version 1)
Quarter: 2022Q4

REPORT INFORMATION
  Report Type: Report from Study
  Country: US (occurrence: US)
  Receive Date: 20221011
  Receipt Date: 20221011
  Transmission Date: 20230113
  Serious: Yes (Other)
  Sender: FDA-Public Use
  Company Number: US-ABBVIE-4148952

PATIENT
  Sex: Male

DRUGS (4)
  1. SKYRIZI [Suspect]
     Active Substance: RISANKIZUMAB-RZAA
     Indication: Psoriasis
     Route: 058
  2. Pfizer/BioNTech [Concomitant]
     Indication: Product used for unknown indication
     Dosage: 2ND DOSE
     Dates: start: 20210327, end: 20210327
  3. Pfizer/BioNTech [Concomitant]
     Indication: Product used for unknown indication
     Dosage: 1ST DOSE
     Dates: start: 20210227, end: 20210227
  4. Pfizer/BioNTech [Concomitant]
     Indication: Product used for unknown indication
     Dosage: 3RD DOSE
     Dates: start: 20221001, end: 20221001

REACTIONS (1)
  - Skin cancer [Recovering/Resolving]
